FAERS Safety Report 10971976 (Version 4)
Quarter: 2015Q3

REPORT INFORMATION
  Report Type: Spontaneous
  Country: AU (occurrence: AU)
  Receive Date: 20150331
  Receipt Date: 20150717
  Transmission Date: 20151125
  Serious: Yes (Hospitalization)
  Sender: FDA-Public Use
  Company Number: AU-009507513-1503AUS013724

PATIENT

DRUGS (8)
  1. EZETIMIBE. [Suspect]
     Active Substance: EZETIMIBE
     Dosage: UNKNOWN
  2. TRIMETHOPRIM. [Suspect]
     Active Substance: TRIMETHOPRIM
  3. NITROGLYCERIN. [Suspect]
     Active Substance: NITROGLYCERIN
     Route: 048
  4. SIMVASTATIN. [Suspect]
     Active Substance: SIMVASTATIN
     Dosage: UNKNOWN
  5. ISOSORBIDE MONONITRATE. [Suspect]
     Active Substance: ISOSORBIDE MONONITRATE
  6. OMEPRAZOLE. [Suspect]
     Active Substance: OMEPRAZOLE
     Route: 048
  7. RAMIPRIL. [Suspect]
     Active Substance: RAMIPRIL
  8. AMIODARONE [Suspect]
     Active Substance: AMIODARONE

REACTIONS (1)
  - Drug-induced liver injury [Unknown]
